FAERS Safety Report 10217729 (Version 1)
Quarter: 2014Q2

REPORT INFORMATION
  Report Type: Spontaneous
  Country: US (occurrence: US)
  Receive Date: 20140604
  Receipt Date: 20140604
  Transmission Date: 20141212
  Serious: Yes (Hospitalization, Other)
  Sender: FDA-Public Use
  Company Number: US-RB-068177-14

PATIENT
  Age: 0 Year
  Sex: Female

DRUGS (6)
  1. SUBOXONE FILM [Suspect]
     Indication: DRUG DEPENDENCE
     Dosage: SUBOXONE FILM
     Route: 064
     Dates: start: 20130630, end: 201310
  2. GENERIC BUPRENORPHINE [Suspect]
     Route: 064
     Dates: start: 201310, end: 20140307
  3. GENERIC BUPRENORPHINE [Suspect]
     Route: 063
     Dates: start: 20140307, end: 201403
  4. GENERIC BUPRENORPHINE [Suspect]
     Indication: DRUG DEPENDENCE
     Route: 063
     Dates: start: 201403
  5. PRENATAL VITAMINS [Concomitant]
     Indication: NUTRITIONAL SUPPLEMENTATION
     Dosage: MATERNAL DOSING DETAILS UNKNOWN; TAKING 1 TABLET DAILY
     Route: 064
     Dates: start: 201310, end: 20140307
  6. PROZAC [Concomitant]
     Indication: HORMONE LEVEL ABNORMAL
     Dosage: MATERNAL DOSING DETAILS UNKNOWN
     Route: 064
     Dates: start: 201312, end: 201403

REACTIONS (4)
  - Foetal exposure during pregnancy [Recovered/Resolved]
  - Premature baby [Recovered/Resolved]
  - Drug withdrawal syndrome neonatal [Unknown]
  - Exposure during breast feeding [Not Recovered/Not Resolved]
